FAERS Safety Report 7860539-3 (Version None)
Quarter: 2011Q4

REPORT INFORMATION
  Report Type: 
  Country: None (occurrence: None)
  Receive Date: 20111027
  Receipt Date: 20111022
  Transmission Date: 20120403
  Serious: Yes (Other)
  Sender: FDA-Public Use
  Company Number: US-PFIZER INC-2011256069

PATIENT
  Sex: Female
  Weight: 90.2 kg

DRUGS (1)
  1. LYRICA [Suspect]
     Indication: FIBROMYALGIA
     Dosage: 50 MG, 2X/DAY
     Route: 048
     Dates: start: 20111012

REACTIONS (9)
  - SOMNOLENCE [None]
  - LETHARGY [None]
  - NAUSEA [None]
  - VISION BLURRED [None]
  - GAIT DISTURBANCE [None]
  - WEIGHT INCREASED [None]
  - DIZZINESS [None]
  - ASTHENIA [None]
  - WEIGHT DECREASED [None]
